FAERS Safety Report 6381703-9 (Version None)
Quarter: 2009Q3

REPORT INFORMATION
  Report Type: 
  Country: None (occurrence: None)
  Receive Date: 20090930
  Receipt Date: 20090917
  Transmission Date: 20100115
  Serious: Yes (Other)
  Sender: FDA-Public Use
  Company Number: PHHY2009NG39925

PATIENT
  Sex: Female

DRUGS (1)
  1. COARTEM [Suspect]
     Indication: MALARIA
     Route: 048

REACTIONS (2)
  - APHASIA [None]
  - DEAFNESS [None]
